FAERS Safety Report 21758815 (Version 1)
Quarter: 2022Q4

REPORT INFORMATION
  Report Type: Spontaneous
  Country: US (occurrence: US)
  Receive Date: 20221221
  Receipt Date: 20221221
  Transmission Date: 20230112
  Serious: Yes (Other)
  Sender: FDA-Public Use
  Company Number: US-BEH-2022153310

PATIENT
  Age: 7 Year
  Sex: Male

DRUGS (4)
  1. IDELVION [Suspect]
     Active Substance: COAGULATION FACTOR IX RECOMBINANT HUMAN
     Indication: Factor IX deficiency
     Dosage: 1000 INTERNATIONAL UNIT, BIW
     Route: 042
     Dates: start: 20220504
  2. IDELVION [Suspect]
     Active Substance: COAGULATION FACTOR IX RECOMBINANT HUMAN
     Indication: Factor IX deficiency
     Dosage: 1000 INTERNATIONAL UNIT, BIW
     Route: 042
     Dates: start: 20220504
  3. IDELVION [Suspect]
     Active Substance: COAGULATION FACTOR IX RECOMBINANT HUMAN
     Indication: Prophylaxis
     Dosage: 2 DOSAGE FORM, PRN
     Route: 065
     Dates: start: 202211
  4. IDELVION [Suspect]
     Active Substance: COAGULATION FACTOR IX RECOMBINANT HUMAN
     Indication: Prophylaxis
     Dosage: 2 DOSAGE FORM, PRN
     Route: 065
     Dates: start: 202211

REACTIONS (2)
  - Traumatic haemorrhage [Recovered/Resolved]
  - Fall [Unknown]

NARRATIVE: CASE EVENT DATE: 20221101
